FAERS Safety Report 9280034 (Version 1)
Quarter: 2013Q2

REPORT INFORMATION
  Report Type: Spontaneous
  Country: US (occurrence: None)
  Receive Date: 20130506
  Receipt Date: 20130506
  Transmission Date: 20140414
  Serious: No
  Sender: FDA-Public Use
  Company Number: None

PATIENT
  Sex: Male
  Weight: 95.26 kg

DRUGS (1)
  1. SUMATRIPTAN [Suspect]
     Route: 058
     Dates: start: 20130417

REACTIONS (2)
  - Nausea [None]
  - Migraine [None]
